FAERS Safety Report 12266875 (Version 2)
Quarter: 2018Q4

REPORT INFORMATION
  Report Type: Other
  Country: IT (occurrence: IT)
  Receive Date: 20160414
  Receipt Date: 20181224
  Transmission Date: 20190204
  Serious: Yes (Life-Threatening, Other)
  Sender: FDA-Public Use
  Company Number: IT-ACCORD-039574

PATIENT
  Age: 42 Year
  Sex: Male

DRUGS (5)
  1. OXALIPLATIN. [Suspect]
     Active Substance: OXALIPLATIN
     Indication: RECTAL CANCER STAGE III
     Dosage: 50% REDUCTION IN THE DOSE , DAY 1
     Route: 042
     Dates: start: 201309
  2. FOLINIC ACID [Suspect]
     Active Substance: LEUCOVORIN
     Indication: RECTAL CANCER STAGE III
     Dosage: 20 MG/M2 DAY 1, WEEKLY
  3. COMPLEMENT C1 ESTERASE INHIBIT [Concomitant]
     Dosage: 1000 IU, 1000 U BERINERT INHIBITOR C1 IN 100 ML SALINE SOLUTION
     Route: 042
  4. FLUOROURACIL. [Suspect]
     Active Substance: FLUOROURACIL
     Indication: RECTAL CANCER STAGE III
     Dosage: 50% REDUCTION IN THE DOSE
     Route: 042
     Dates: start: 201309
  5. SODIUM CHLORIDE. [Concomitant]
     Active Substance: SODIUM CHLORIDE
     Dosage: 1000 U BERINERT INHIBITOR C1 IN 100 ML SALINE SOLUTION
     Route: 042

REACTIONS (4)
  - Neutropenia [Unknown]
  - Neuropathy peripheral [Unknown]
  - Thrombocytopenia [Unknown]
  - Hereditary angioedema [Unknown]

NARRATIVE: CASE EVENT DATE: 2013
